FAERS Safety Report 16262670 (Version 2)
Quarter: 2019Q2

REPORT INFORMATION
  Report Type: Spontaneous
  Country: US (occurrence: US)
  Receive Date: 20190502
  Receipt Date: 20190502
  Transmission Date: 20190711
  Serious: Yes (Other)
  Sender: FDA-Public Use
  Company Number: US-GLAXOSMITHKLINE-US2019075950

PATIENT
  Age: 55 Year
  Sex: Female

DRUGS (2)
  1. ADVAIR HFA [Suspect]
     Active Substance: FLUTICASONE PROPIONATE\SALMETEROL XINAFOATE
     Indication: PRODUCT USED FOR UNKNOWN INDICATION
     Dosage: UNK
     Route: 055
  2. ANORO ELLIPTA [Suspect]
     Active Substance: UMECLIDINIUM BROMIDE\VILANTEROL TRIFENATATE
     Indication: CHRONIC OBSTRUCTIVE PULMONARY DISEASE
     Dosage: 1 PUFF(S), BID
     Route: 055
     Dates: start: 201812

REACTIONS (14)
  - Visual field defect [Unknown]
  - Lacrimation increased [Unknown]
  - Nerve injury [Unknown]
  - Condition aggravated [Unknown]
  - Vitreous floaters [Unknown]
  - Visual impairment [Unknown]
  - Eye pain [Unknown]
  - Halo vision [Unknown]
  - Vision blurred [Unknown]
  - Photopsia [Unknown]
  - Dyspnoea [Unknown]
  - Prescribed overdose [Unknown]
  - Cataract [Unknown]
  - Headache [Unknown]

NARRATIVE: CASE EVENT DATE: 201901
